FAERS Safety Report 23372915 (Version 1)
Quarter: 2024Q1

REPORT INFORMATION
  Report Type: Spontaneous
  Country: SE (occurrence: SE)
  Receive Date: 20240105
  Receipt Date: 20240105
  Transmission Date: 20240410
  Serious: Yes (Hospitalization)
  Sender: FDA-Public Use
  Company Number: None

PATIENT
  Age: 57 Year
  Sex: Male

DRUGS (20)
  1. LENVIMA [Suspect]
     Active Substance: LENVATINIB
     Indication: Hepatocellular carcinoma
     Route: 048
     Dates: end: 20231028
  2. ELIQUIS [Concomitant]
     Active Substance: APIXABAN
     Dates: end: 20121028
  3. IMDUR [Concomitant]
     Active Substance: ISOSORBIDE MONONITRATE
  4. PROPIOMAZINE [Concomitant]
     Active Substance: PROPIOMAZINE
     Dosage: 1-2 AT NIGHT AS NEEDED.
  5. ESOMEPRAZOLE [Concomitant]
     Active Substance: ESOMEPRAZOLE
  6. ATORVASTATIN [Concomitant]
     Active Substance: ATORVASTATIN
  7. OXAZEPAM [Concomitant]
     Active Substance: OXAZEPAM
  8. ATENOLOL [Concomitant]
     Active Substance: ATENOLOL
  9. CANDESARTAN [Concomitant]
     Active Substance: CANDESARTAN
  10. LINAGLIPTIN [Concomitant]
     Active Substance: LINAGLIPTIN
  11. POLYETHYLENE GLYCOL 4000 [Concomitant]
     Active Substance: POLYETHYLENE GLYCOL 4000
  12. ACETAMINOPHEN [Concomitant]
     Active Substance: ACETAMINOPHEN
     Dosage: 1-2 AS NECESSARY
  13. Glytrin [Concomitant]
     Dosage: 1-2 AS NECESSARY
  14. OXYCODONE HYDROCHLORIDE [Concomitant]
     Active Substance: OXYCODONE HYDROCHLORIDE
  15. JARDIANCE [Concomitant]
     Active Substance: EMPAGLIFLOZIN
  16. ONDANSETRON [Concomitant]
     Active Substance: ONDANSETRON
  17. Betolvex [Concomitant]
  18. DIGOXIN [Concomitant]
     Active Substance: DIGOXIN
  19. Folsyra [Concomitant]
  20. OXYCONTIN [Concomitant]
     Active Substance: OXYCODONE HYDROCHLORIDE

REACTIONS (6)
  - Headache [Unknown]
  - Posterior reversible encephalopathy syndrome [Unknown]
  - Cerebral haemorrhage [Unknown]
  - Blood pressure increased [Unknown]
  - Diarrhoea [Unknown]
  - Abdominal pain [Unknown]

NARRATIVE: CASE EVENT DATE: 20231024
